FAERS Safety Report 7989755-7 (Version None)
Quarter: 2011Q4

REPORT INFORMATION
  Report Type: 
  Country: None (occurrence: None)
  Receive Date: 20111219
  Receipt Date: 20101026
  Transmission Date: 20120403
  Serious: No
  Sender: FDA-Public Use
  Company Number: US-ASTRAZENECA-2010SE50776

PATIENT
  Sex: Male

DRUGS (9)
  1. LOVAZA [Concomitant]
  2. LISINOPRIL [Concomitant]
  3. METOPROLOL TARTRATE [Concomitant]
  4. CRESTOR [Suspect]
     Indication: HYPERCHOLESTEROLAEMIA
     Route: 048
  5. METFORMIN HCL [Concomitant]
  6. RANEXA [Concomitant]
  7. ISOSORBIDE DINITRATE [Concomitant]
  8. AMLODIPINE [Concomitant]
  9. PLAVIX [Concomitant]

REACTIONS (3)
  - DRUG DOSE OMISSION [None]
  - LIPIDS INCREASED [None]
  - TOTAL CHOLESTEROL/HDL RATIO DECREASED [None]
